FAERS Safety Report 7229296-8 (Version None)
Quarter: 2011Q1

REPORT INFORMATION
  Report Type: 
  Country: None (occurrence: None)
  Receive Date: 20110117
  Receipt Date: 20110110
  Transmission Date: 20110831
  Serious: Yes (Other)
  Sender: FDA-Public Use
  Company Number: BR-SANOFI-AVENTIS-2011SA001935

PATIENT
  Age: 69 Year
  Sex: Male
  Weight: 119 kg

DRUGS (7)
  1. ATENSINA [Concomitant]
     Indication: BLOOD PRESSURE
     Route: 048
  2. ACETYLCYSTEINE [Concomitant]
     Indication: RENAL DISORDER
     Route: 048
  3. AUTOPEN 24 [Suspect]
  4. LANTUS [Suspect]
     Indication: TYPE 2 DIABETES MELLITUS
     Route: 058
  5. AMLODIPINE [Concomitant]
     Indication: BLOOD PRESSURE
     Route: 048
  6. AAS INFANTIL [Concomitant]
     Route: 048
  7. CALCITRIOL [Concomitant]
     Route: 048

REACTIONS (2)
  - RENAL DISORDER [None]
  - CONDITION AGGRAVATED [None]
